FAERS Safety Report 17354696 (Version 1)
Quarter: 2020Q1

REPORT INFORMATION
  Report Type: Spontaneous
  Country: US (occurrence: US)
  Receive Date: 20200130
  Receipt Date: 20200130
  Transmission Date: 20200409
  Serious: No
  Sender: FDA-Public Use
  Company Number: None

PATIENT
  Age: 52 Year
  Sex: Male
  Weight: 106.14 kg

DRUGS (1)
  1. GALCANEZUMAB-GNLM [Suspect]
     Active Substance: GALCANEZUMAB-GNLM
     Indication: MIGRAINE
     Route: 058
     Dates: start: 20190919

REACTIONS (1)
  - Upper respiratory tract infection [None]

NARRATIVE: CASE EVENT DATE: 20191225
